FAERS Safety Report 8401788-5 (Version None)
Quarter: 2012Q2

REPORT INFORMATION
  Report Type: 
  Country: None (occurrence: None)
  Receive Date: 20120529
  Receipt Date: 19980204
  Transmission Date: 20120825
  Serious: Yes (Disabling)
  Sender: FDA-Public Use
  Company Number: 002634

PATIENT
  Age: 71 Year
  Sex: Male

DRUGS (4)
  1. ALPROSTADIL [Concomitant]
  2. REBAMIPIDE (REBAMIPIDE) [Concomitant]
  3. LIMAPROST ALFADEX (LIMAPROST ALFADEX) [Concomitant]
  4. PLETAL [Suspect]
     Dosage: 200 MG, DAILY DOSE, ORAL
     Route: 048
     Dates: start: 19980101, end: 19980112

REACTIONS (4)
  - NECROSIS [None]
  - DYSGEUSIA [None]
  - HYPOAESTHESIA ORAL [None]
  - LEG AMPUTATION [None]
